FAERS Safety Report 8234500-3 (Version None)
Quarter: 2012Q1

REPORT INFORMATION
  Report Type: 
  Country: None (occurrence: None)
  Receive Date: 20120326
  Receipt Date: 20120313
  Transmission Date: 20120608
  Serious: Yes (Other)
  Sender: FDA-Public Use
  Company Number: US-ROCHE-1015926

PATIENT
  Sex: Male
  Weight: 61.29 kg

DRUGS (2)
  1. ACCUTANE [Suspect]
     Dates: start: 20010511, end: 20011201
  2. ACCUTANE [Suspect]
     Indication: ACNE
     Route: 065
     Dates: start: 19980801, end: 19990222

REACTIONS (4)
  - INJURY [None]
  - DEPRESSION [None]
  - CROHN'S DISEASE [None]
  - COLITIS ULCERATIVE [None]
